FAERS Safety Report 5904363-7 (Version None)
Quarter: 2008Q4

REPORT INFORMATION
  Report Type: 
  Country: None (occurrence: None)
  Receive Date: 20081001
  Receipt Date: 20080924
  Transmission Date: 20090506
  Serious: Yes (Other)
  Sender: FDA-Public Use
  Company Number: PHBS2008GR05830

PATIENT
  Sex: Female

DRUGS (1)
  1. CARBAMAZEPINE [Suspect]
     Indication: BIPOLAR DISORDER

REACTIONS (5)
  - ASTHENIA [None]
  - GAIT DISTURBANCE [None]
  - SENSITIVITY OF TEETH [None]
  - SENSORY LOSS [None]
  - VITAMIN B12 DEFICIENCY [None]
